FAERS Safety Report 4413427-9 (Version None)
Quarter: 2004Q2

REPORT INFORMATION
  Report Type: 
  Country: None (occurrence: None)
  Receive Date: 20040630
  Receipt Date: 20040304
  Transmission Date: 20050107
  Serious: Yes (Hospitalization)
  Sender: FDA-Public Use
  Company Number: 04P-163-0252295-00

PATIENT
  Age: 72 Year
  Sex: Female
  Weight: 99.7913 kg

DRUGS (8)
  1. HUMIRA [Suspect]
     Dates: start: 20030101, end: 20040201
  2. HUMIRA [Suspect]
     Dates: start: 20040311
  3. LEFLUNOMIDE [Concomitant]
  4. ISOSORBIDE MONONITRATE [Concomitant]
  5. ALENDRONATE SODIUM [Concomitant]
  6. FOLIC ACID [Concomitant]
  7. FUROSEMIDE [Concomitant]
  8. POTASSIUM [Concomitant]

REACTIONS (1)
  - PNEUMONIA VIRAL [None]
